FAERS Safety Report 9878849 (Version 2)
Quarter: 2014Q1

REPORT INFORMATION
  Report Type: Spontaneous
  Country: DE (occurrence: DE)
  Receive Date: 20140206
  Receipt Date: 20140221
  Transmission Date: 20141002
  Serious: Yes (Hospitalization)
  Sender: FDA-Public Use
  Company Number: DE-JNJFOC-20140203299

PATIENT
  Sex: Male
  Weight: 89 kg

DRUGS (6)
  1. XARELTO [Suspect]
     Indication: ATRIAL FIBRILLATION
     Route: 048
  2. XARELTO [Suspect]
     Indication: CEREBROVASCULAR ACCIDENT PROPHYLAXIS
     Route: 048
  3. AMIODARON [Concomitant]
     Route: 065
  4. KALIUM VERLA (POTASSIUM CITRATE) [Concomitant]
     Route: 065
  5. LOSARTAN [Concomitant]
     Route: 065
  6. PANTOPRAZOLE [Concomitant]
     Route: 065

REACTIONS (1)
  - Lower gastrointestinal haemorrhage [Unknown]
